FAERS Safety Report 16223070 (Version 1)
Quarter: 2019Q2

REPORT INFORMATION
  Report Type: Spontaneous
  Country: US (occurrence: US)
  Receive Date: 20190422
  Receipt Date: 20190422
  Transmission Date: 20190711
  Serious: No
  Sender: FDA-Public Use
  Company Number: US-JIANGSU HENGRUI MEDICINE CO., LTD.-2066090

PATIENT
  Age: 52 Year
  Sex: Male

DRUGS (12)
  1. RITUXIMAB. [Concomitant]
     Active Substance: RITUXIMAB
  2. GEMCITABINE [Concomitant]
     Active Substance: GEMCITABINE\GEMCITABINE HYDROCHLORIDE
  3. IFEX [Concomitant]
     Active Substance: IFOSFAMIDE
  4. VINCRISTINE [Concomitant]
     Active Substance: VINCRISTINE
  5. DEXAMETHASONE. [Concomitant]
     Active Substance: DEXAMETHASONE
  6. ETOPOSIDE. [Concomitant]
     Active Substance: ETOPOSIDE
  7. DOXORUBICIN HYDROCHLORIDE. [Concomitant]
     Active Substance: DOXORUBICIN HYDROCHLORIDE
  8. CISPLATIN. [Concomitant]
     Active Substance: CISPLATIN
  9. CARBOPLATIN. [Concomitant]
     Active Substance: CARBOPLATIN
  10. CYCLOPHOSPHAMIDE FOR INJECTION USP, 500 MG, 1 G AND 2 G PER SINGLE-DOS [Suspect]
     Active Substance: CYCLOPHOSPHAMIDE
     Indication: DIFFUSE LARGE B-CELL LYMPHOMA
  11. PREDNISONE. [Concomitant]
     Active Substance: PREDNISONE
  12. YESCARTA [Concomitant]
     Active Substance: AXICABTAGENE CILOLEUCEL
     Dates: start: 20171227

REACTIONS (2)
  - Malignant neoplasm progression [Unknown]
  - Diffuse large B-cell lymphoma recurrent [Unknown]
